FAERS Safety Report 8032944-6 (Version None)
Quarter: 2012Q1

REPORT INFORMATION
  Report Type: 
  Country: None (occurrence: None)
  Receive Date: 20120110
  Receipt Date: 20120102
  Transmission Date: 20120608
  Serious: Yes (Life-Threatening, Hospitalization, Other)
  Sender: FDA-Public Use
  Company Number: MX-SANOFI-AVENTIS-2011SA083785

PATIENT
  Age: 73 Year
  Sex: Male
  Weight: 96 kg

DRUGS (7)
  1. IRBESARTAN [Suspect]
     Route: 048
     Dates: start: 20060101
  2. LANTUS [Suspect]
     Indication: TYPE 2 DIABETES MELLITUS
     Route: 058
     Dates: start: 20060101
  3. COPLAVIX [Suspect]
     Indication: THROMBOSIS PROPHYLAXIS
     Route: 048
     Dates: start: 20110601
  4. CARVEDILOL [Concomitant]
     Route: 048
     Dates: start: 20111101
  5. CRESTOR [Concomitant]
     Route: 048
     Dates: start: 20111101
  6. LASIX [Concomitant]
     Route: 048
     Dates: start: 20060101
  7. LIPITOR [Concomitant]
     Route: 048
     Dates: start: 20060101, end: 20111101

REACTIONS (5)
  - MYOCARDIAL INFARCTION [None]
  - CARDIAC DISORDER [None]
  - URINARY TRACT INFECTION [None]
  - DIZZINESS [None]
  - CIRCUMORAL OEDEMA [None]
